FAERS Safety Report 12958592 (Version 1)
Quarter: 2016Q4

REPORT INFORMATION
  Report Type: Spontaneous
  Country: US (occurrence: US)
  Receive Date: 20161121
  Receipt Date: 20161121
  Transmission Date: 20170207
  Serious: No
  Sender: FDA-Public Use
  Company Number: US-TEVA-641355USA

PATIENT
  Age: 68 Year
  Sex: Male

DRUGS (1)
  1. BUDESONIDE. [Suspect]
     Active Substance: BUDESONIDE
     Indication: PROCEDURAL PAIN
     Dosage: 0.5MG/2ML
     Route: 045

REACTIONS (4)
  - Drug prescribing error [Unknown]
  - Cough [Unknown]
  - Off label use [Unknown]
  - Incorrect route of drug administration [Unknown]
